FAERS Safety Report 21273183 (Version 11)
Quarter: 2025Q3

REPORT INFORMATION
  Report Type: Spontaneous
  Country: AU (occurrence: AU)
  Receive Date: 20220831
  Receipt Date: 20250905
  Transmission Date: 20251020
  Serious: Yes (Hospitalization, Other)
  Sender: AMGEN
  Company Number: AU-AMGEN-AUSSP2022136749

PATIENT
  Age: 62 Year
  Sex: Female
  Weight: 78.4 kg

DRUGS (21)
  1. XGEVA [Suspect]
     Active Substance: DENOSUMAB
     Indication: Metastases to bone
     Route: 065
     Dates: start: 20110101, end: 20211108
  2. XGEVA [Suspect]
     Active Substance: DENOSUMAB
     Indication: Hypercalcaemia
     Dosage: 120 MILLIGRAM, QMO
     Route: 058
     Dates: start: 20211109, end: 20220721
  3. INVESTIGATIONAL PRODUCT [Suspect]
     Active Substance: INVESTIGATIONAL PRODUCT
     Indication: Breast cancer
     Dosage: 5 MILLIGRAM, QD
     Route: 048
     Dates: start: 20220324
  4. OMEPRAZOLE [Concomitant]
     Active Substance: OMEPRAZOLE
     Indication: Gastrooesophageal reflux disease
     Dosage: 20 MILLIGRAM, QD
     Route: 048
     Dates: start: 19950101
  5. VITAMINS [Concomitant]
     Active Substance: VITAMINS
     Indication: Supplementation therapy
     Dosage: 1 UNIT, QD
     Route: 048
     Dates: start: 20220501
  6. CALCIUM CARBONATE [Concomitant]
     Active Substance: CALCIUM CARBONATE
     Indication: Supplementation therapy
     Route: 048
  7. CALCIUM CARBONATE [Concomitant]
     Active Substance: CALCIUM CARBONATE
     Indication: Hypocalcaemia
     Dosage: 1200 MILLIGRAM, TID
     Route: 048
     Dates: start: 20220801
  8. CALCIUM CARBONATE [Concomitant]
     Active Substance: CALCIUM CARBONATE
     Indication: Prophylaxis
     Dosage: 600 MILLIGRAM, QD
     Route: 048
  9. VITAMIN D [Concomitant]
     Active Substance: VITAMIN D NOS
     Indication: Supplementation therapy
     Dosage: 1000 INTERNATIONAL UNIT, QD
     Route: 048
     Dates: start: 20220802
  10. VITAMIN D [Concomitant]
     Active Substance: VITAMIN D NOS
     Indication: Prophylaxis
  11. MAGNESIUM [Concomitant]
     Active Substance: MAGNESIUM
     Indication: Supplementation therapy
     Dosage: 1000 MILLIGRAM, QD
     Route: 048
  12. GLUCOSAMINE [Concomitant]
     Active Substance: GLUCOSAMINE
     Indication: Arthritis
     Dosage: 1 DOSE UNSPECIFIED, QD
     Route: 048
     Dates: start: 20050101
  13. GLUCOSAMINE [Concomitant]
     Active Substance: GLUCOSAMINE
     Route: 048
     Dates: start: 20220101
  14. SERTRALINE [Concomitant]
     Active Substance: SERTRALINE HYDROCHLORIDE
     Indication: Depression
     Dosage: 50 MILLIGRAM, QD
     Route: 048
     Dates: start: 20220721
  15. UNSPECIFIED INGREDIENT [Concomitant]
     Active Substance: UNSPECIFIED INGREDIENT
     Indication: Hypophosphataemia
     Route: 048
     Dates: start: 20220803
  16. UNSPECIFIED INGREDIENT [Concomitant]
     Active Substance: UNSPECIFIED INGREDIENT
     Dosage: 2000 MILLIGRAM, QD
     Route: 048
  17. LORATADINE [Concomitant]
     Active Substance: LORATADINE
     Indication: Seasonal allergy
     Route: 048
     Dates: start: 20190424
  18. ACETAMINOPHEN [Concomitant]
     Active Substance: ACETAMINOPHEN
     Indication: Pain
     Route: 048
     Dates: start: 20200824
  19. ACETAMINOPHEN [Concomitant]
     Active Substance: ACETAMINOPHEN
     Indication: Headache
  20. IBUPROFEN [Concomitant]
     Active Substance: IBUPROFEN
     Indication: Pain
     Dates: start: 20210201
  21. IBUPROFEN [Concomitant]
     Active Substance: IBUPROFEN
     Indication: Headache

REACTIONS (7)
  - Arthralgia [Recovered/Resolved]
  - Hypocalcaemia [Recovered/Resolved]
  - Haemoglobin decreased [Unknown]
  - Blood magnesium decreased [Unknown]
  - Blood phosphorus decreased [Unknown]
  - Joint effusion [Unknown]
  - Pain in extremity [Recovered/Resolved]

NARRATIVE: CASE EVENT DATE: 20220421
